FAERS Safety Report 16809369 (Version 3)
Quarter: 2022Q1

REPORT INFORMATION
  Report Type: Spontaneous
  Country: CH (occurrence: CH)
  Receive Date: 20190916
  Receipt Date: 20220201
  Transmission Date: 20220423
  Serious: Yes (Hospitalization, Other)
  Sender: FDA-Public Use
  Company Number: CH-SM-2019-16275

PATIENT
  Sex: Female

DRUGS (15)
  1. CIPROFLOXACIN [Interacting]
     Active Substance: CIPROFLOXACIN
     Route: 048
     Dates: start: 20190823, end: 20190828
  2. DEXAMETHASONE [Interacting]
     Active Substance: DEXAMETHASONE
     Route: 042
  3. TAGRISSO [Interacting]
     Active Substance: OSIMERTINIB
     Route: 048
     Dates: start: 20190807, end: 20190825
  4. TAGRISSO [Interacting]
     Active Substance: OSIMERTINIB
     Route: 048
     Dates: start: 20190826
  5. TRIUMEQ [Suspect]
     Active Substance: ABACAVIR SULFATE\DOLUTEGRAVIR SODIUM\LAMIVUDINE
     Route: 048
  6. CEFUROXIME AXETIL [Suspect]
     Active Substance: CEFUROXIME AXETIL
     Route: 048
     Dates: start: 20190826, end: 20190831
  7. SPORANOX [Interacting]
     Active Substance: ITRACONAZOLE
     Dosage: 400 MILLIGRAM DAILY;
     Route: 065
  8. BACTRIM [Suspect]
     Active Substance: SULFAMETHOXAZOLE\TRIMETHOPRIM
     Route: 048
  9. NEXIUM [Suspect]
     Active Substance: ESOMEPRAZOLE MAGNESIUM
     Route: 048
  10. VALTREX [Suspect]
     Active Substance: VALACYCLOVIR HYDROCHLORIDE
     Route: 065
     Dates: start: 20190823, end: 20190830
  11. ENOXAPARIN SODIUM [Concomitant]
     Active Substance: ENOXAPARIN SODIUM
     Route: 058
     Dates: start: 20190821
  12. MOTILIUM [Concomitant]
     Active Substance: DOMPERIDONE
     Route: 060
  13. LEUCOVORIN CALCIUM [Concomitant]
     Active Substance: LEUCOVORIN CALCIUM
     Route: 048
  14. Paspertin [Concomitant]
     Dates: start: 20190826, end: 20190826
  15. DAFALGAN [Concomitant]
     Active Substance: ACETAMINOPHEN
     Dosage: AS NECESSARY
     Dates: start: 20190821

REACTIONS (2)
  - Pancytopenia [Not Recovered/Not Resolved]
  - Drug interaction [Not Recovered/Not Resolved]
